FAERS Safety Report 8958587 (Version 1)
Quarter: 2012Q4

REPORT INFORMATION
  Report Type: Spontaneous
  Country: US (occurrence: None)
  Receive Date: 20121205
  Receipt Date: 20121205
  Transmission Date: 20130627
  Serious: Yes (Life-Threatening, Hospitalization)
  Sender: FDA-Public Use
  Company Number: None

PATIENT
  Age: 84 Year
  Sex: Female
  Weight: 54.43 kg

DRUGS (2)
  1. CHLORTHALIDONE [Suspect]
     Dates: start: 20120503, end: 20120613
  2. AMLODIPINE BESYLATE [Suspect]

REACTIONS (3)
  - Polydipsia [None]
  - Rash [None]
  - Pruritus [None]
